FAERS Safety Report 16538781 (Version 1)
Quarter: 2019Q3

REPORT INFORMATION
  Report Type: Spontaneous
  Country: GB (occurrence: GB)
  Receive Date: 20190708
  Receipt Date: 20190708
  Transmission Date: 20191004
  Serious: Yes (Hospitalization)
  Sender: FDA-Public Use
  Company Number: GB-ACCORD-137284

PATIENT
  Age: 79 Year
  Sex: Female

DRUGS (8)
  1. METFORMIN [Concomitant]
     Active Substance: METFORMIN HYDROCHLORIDE
     Dosage: DOSAGE TEXT: AT EVENING MEAL
     Route: 048
  2. AMLODIPINE [Suspect]
     Active Substance: AMLODIPINE BESYLATE
     Indication: PRODUCT USED FOR UNKNOWN INDICATION
     Route: 048
     Dates: end: 20190606
  3. OMEPRAZOLE. [Suspect]
     Active Substance: OMEPRAZOLE
     Indication: PRODUCT USED FOR UNKNOWN INDICATION
     Route: 048
     Dates: end: 20190606
  4. SIMVASTATIN. [Concomitant]
     Active Substance: SIMVASTATIN
     Dosage: DOSAGE TEXT: NIGHT
     Route: 054
  5. CODEINE PHOSPHATE/PARACETAMOL [Concomitant]
     Dosage: DOSAGE TEXT: 1-2 FOUR TIMES A DAY. 8 MG/500 MG
     Route: 048
  6. RAMIPRIL. [Suspect]
     Active Substance: RAMIPRIL
     Indication: PRODUCT USED FOR UNKNOWN INDICATION
     Dosage: DOSAGE TEXT: REDUCED TO 5 MG ONCE A DAY
     Route: 048
     Dates: end: 20190606
  7. BISOPROLOL [Concomitant]
     Active Substance: BISOPROLOL
     Route: 048
  8. ISOPHANE INSULIN [Concomitant]
     Active Substance: INSULIN NOS
     Dosage: DOSAGE TEXT: 30 UNITS AT BREAKFAST 20 UNITS WITH TEA. 100 UNITS/ML
     Route: 058

REACTIONS (3)
  - Orthostatic hypotension [Recovering/Resolving]
  - Hypomagnesaemia [Recovered/Resolved]
  - Dizziness [Unknown]

NARRATIVE: CASE EVENT DATE: 20190605
